FAERS Safety Report 6584638-1 (Version None)
Quarter: 2010Q1

REPORT INFORMATION
  Report Type: 
  Country: None (occurrence: None)
  Receive Date: 20100212
  Receipt Date: 20100212
  Transmission Date: 20100710
  Serious: Yes (Hospitalization)
  Sender: FDA-Public Use
  Company Number: None

PATIENT
  Age: 67 Year
  Sex: Male

DRUGS (1)
  1. DIVALPROEX SODIUM [Suspect]
     Indication: BIPOLAR DISORDER
     Dosage: 750 MG AM PO
     Route: 048
     Dates: start: 20080115, end: 20091126

REACTIONS (2)
  - PANCREATIC PSEUDOCYST [None]
  - PANCREATITIS ACUTE [None]
